FAERS Safety Report 12944767 (Version 3)
Quarter: 2017Q2

REPORT INFORMATION
  Report Type: Report from Study
  Country: US (occurrence: US)
  Receive Date: 20161115
  Receipt Date: 20170404
  Transmission Date: 20170830
  Serious: Yes (Death, Hospitalization)
  Sender: FDA-Public Use
  Company Number: US-BAYER-2016-118671

PATIENT
  Age: 68 Year
  Sex: Male

DRUGS (6)
  1. NEXAVAR [Suspect]
     Active Substance: SORAFENIB
     Indication: HEPATIC CANCER
     Dosage: 400  MG
     Route: 048
     Dates: start: 2016, end: 2016
  2. VALSARTAN AND HYDROCHLOROTHIAZIDE [Concomitant]
     Active Substance: HYDROCHLOROTHIAZIDE\VALSARTAN
  3. VALSARTAN. [Concomitant]
     Active Substance: VALSARTAN
  4. NEXAVAR [Suspect]
     Active Substance: SORAFENIB
     Indication: RENAL CANCER
     Dosage: 400 MG, BID
     Route: 048
     Dates: start: 201612
  5. NEXAVAR [Suspect]
     Active Substance: SORAFENIB
     Indication: RENAL CANCER
     Dosage: 400 MG DAILY DOSE
     Route: 048
     Dates: start: 2016, end: 2016
  6. NEXAVAR [Suspect]
     Active Substance: SORAFENIB
     Indication: RENAL CANCER
     Dosage: 200 MG, BID
     Route: 048
     Dates: start: 20160517, end: 2016

REACTIONS (13)
  - Fatigue [Recovering/Resolving]
  - Rash [Recovering/Resolving]
  - Diarrhoea [None]
  - Blood potassium decreased [None]
  - Hepatic cancer [Fatal]
  - Blood magnesium decreased [None]
  - Abdominal discomfort [None]
  - Renal cancer [Fatal]
  - Oedema peripheral [None]
  - Gastric dilatation [None]
  - Drug dose omission [None]
  - Fatigue [None]
  - Foot operation [None]

NARRATIVE: CASE EVENT DATE: 201605
